FAERS Safety Report 20644930 (Version 1)
Quarter: 2022Q1

REPORT INFORMATION
  Report Type: Spontaneous
  Country: US (occurrence: US)
  Receive Date: 20220328
  Receipt Date: 20220328
  Transmission Date: 20220424
  Serious: Yes (Hospitalization, Other)
  Sender: FDA-Public Use
  Company Number: US-PFIZER INC-202200441195

PATIENT
  Age: 60 Year
  Sex: Male

DRUGS (7)
  1. EPLERENONE [Suspect]
     Active Substance: EPLERENONE
     Dosage: 50 MG
  2. METOPROLOL TARTRATE [Suspect]
     Active Substance: METOPROLOL TARTRATE
     Dosage: 25 MG
  3. ALPRAZOLAM [Suspect]
     Active Substance: ALPRAZOLAM
     Dosage: 2.5 MG, 3X/DAY
  4. CRESTOR [Suspect]
     Active Substance: ROSUVASTATIN CALCIUM
     Dosage: 10 MG
  5. CLOPIDOGREL [Suspect]
     Active Substance: CLOPIDOGREL BISULFATE
     Dosage: 75 MG
  6. INSULIN NOS [Suspect]
     Active Substance: INSULIN NOS
     Dosage: UNK, 3X/DAY
     Dates: start: 2011
  7. LEVEMIR [Suspect]
     Active Substance: INSULIN DETEMIR
     Dosage: UNK (BED TIME)
     Dates: start: 2011

REACTIONS (3)
  - Cardiac disorder [Unknown]
  - Cerebrovascular accident [Unknown]
  - Myocardial infarction [Unknown]

NARRATIVE: CASE EVENT DATE: 20210228
